FAERS Safety Report 5787064-8 (Version None)
Quarter: 2008Q2

REPORT INFORMATION
  Report Type: 
  Country: None (occurrence: None)
  Receive Date: 20080618
  Receipt Date: 20080606
  Transmission Date: 20081010
  Serious: Yes (Death)
  Sender: FDA-Public Use
  Company Number: 2008AL005047

PATIENT
  Age: 84 Year
  Sex: Male
  Weight: 72.5755 kg

DRUGS (1)
  1. DIGOXIN [Suspect]

REACTIONS (4)
  - ASTHENIA [None]
  - DYSPHAGIA [None]
  - HEART RATE IRREGULAR [None]
  - ORAL INTAKE REDUCED [None]
